FAERS Safety Report 8073121-2 (Version None)
Quarter: 2012Q1

REPORT INFORMATION
  Report Type: 
  Country: None (occurrence: None)
  Receive Date: 20120126
  Receipt Date: 20120116
  Transmission Date: 20120608
  Serious: Yes (Hospitalization)
  Sender: FDA-Public Use
  Company Number: US-JNJFOC-20120106286

PATIENT
  Age: 63 Year
  Sex: Female
  Weight: 102.51 kg

DRUGS (3)
  1. XARELTO [Suspect]
     Indication: KNEE ARTHROPLASTY
     Route: 048
  2. XARELTO [Suspect]
     Indication: THROMBOSIS PROPHYLAXIS
     Route: 048
  3. PRILOSEC [Concomitant]

REACTIONS (3)
  - BLISTER [None]
  - RASH [None]
  - DEEP VEIN THROMBOSIS [None]
